APPROVED DRUG PRODUCT: GUANFACINE HYDROCHLORIDE
Active Ingredient: GUANFACINE HYDROCHLORIDE
Strength: EQ 3MG BASE
Dosage Form/Route: TABLET, EXTENDED RELEASE;ORAL
Application: A202578 | Product #003
Applicant: PHARMOBEDIENT CONSULTING LLC
Approved: Jun 2, 2015 | RLD: No | RS: No | Type: DISCN